FAERS Safety Report 25180216 (Version 1)
Quarter: 2025Q2

REPORT INFORMATION
  Report Type: Spontaneous
  Country: US (occurrence: US)
  Receive Date: 20250409
  Receipt Date: 20250409
  Transmission Date: 20250717
  Serious: No
  Sender: GALPHARM INTERNATIONAL
  Company Number: US-PERRIGO-25US001528

PATIENT
  Age: 84 Year
  Sex: Male
  Weight: 73.469 kg

DRUGS (2)
  1. DEXTROMETHORPHAN HYDROBROMIDE\GUAIFENESIN [Suspect]
     Active Substance: DEXTROMETHORPHAN HYDROBROMIDE\GUAIFENESIN
     Indication: Bronchitis
     Route: 048
     Dates: start: 20250130, end: 20250130
  2. KONSYL ORIGINAL FORMULA PSYLLIUM FIBER [Suspect]
     Active Substance: PSYLLIUM HUSK
     Indication: Bowel movement irregularity
     Route: 065

REACTIONS (3)
  - Abdominal pain upper [Not Recovered/Not Resolved]
  - Flatulence [Not Recovered/Not Resolved]
  - Off label use [Unknown]

NARRATIVE: CASE EVENT DATE: 20250130
